FAERS Safety Report 11810536 (Version 1)
Quarter: 2015Q4

REPORT INFORMATION
  Report Type: Spontaneous
  Country: US (occurrence: US)
  Receive Date: 20151208
  Receipt Date: 20151208
  Transmission Date: 20160305
  Serious: No
  Sender: FDA-Public Use
  Company Number: US-ASTRAZENECA-2015SF20026

PATIENT
  Age: 27172 Day
  Sex: Female
  Weight: 76.7 kg

DRUGS (3)
  1. MOVANTIK [Suspect]
     Active Substance: NALOXEGOL OXALATE
     Indication: CONSTIPATION
     Route: 048
     Dates: start: 201510
  2. PRECOCET [Concomitant]
     Indication: NECK PAIN
     Route: 048
     Dates: start: 2013
  3. PRECOCET [Concomitant]
     Indication: SPINAL PAIN
     Route: 048
     Dates: start: 2013

REACTIONS (2)
  - Bowel movement irregularity [Unknown]
  - Drug ineffective [Unknown]

NARRATIVE: CASE EVENT DATE: 20151121
